FAERS Safety Report 4766421-2 (Version None)
Quarter: 2005Q3

REPORT INFORMATION
  Report Type: 
  Country: None (occurrence: None)
  Receive Date: 20050909
  Receipt Date: 20050830
  Transmission Date: 20060218
  Serious: Yes (Other)
  Sender: FDA-Public Use
  Company Number: 2005122634

PATIENT
  Age: 13 Year
  Sex: Female
  Weight: 43.5 kg

DRUGS (8)
  1. PHENYTOIN SODIUM [Suspect]
     Indication: CONVULSION
     Dosage: 300 MG (150 MG, 2 IN 1 D), ORAL
     Route: 048
     Dates: start: 20040501, end: 20050527
  2. PAMIDRONATE DISODIUM [Suspect]
     Indication: OSTEOPOROSIS
     Dosage: 44 MG (44 MG, INTRAVENOUS)
     Route: 042
     Dates: start: 20050425, end: 20050427
  3. HYDROCORTISONE [Concomitant]
  4. SODIUM CHLORIDE 0.9% [Concomitant]
  5. CALCICHEW-D3 (CALCIUM CARBONATE, COLECALCIFEROL) [Concomitant]
  6. MAGNESIUM GLYCEROPHOSPHATE (MAGNESIUM GLYCEROPHOSPHATE) [Concomitant]
  7. FLUDROCORTISONE ACETATE [Concomitant]
  8. DOCUSATE (DOCUSATE) [Concomitant]

REACTIONS (6)
  - DIPLOPIA [None]
  - DYSKINESIA [None]
  - HEAD TITUBATION [None]
  - HEADACHE [None]
  - THERAPEUTIC AGENT TOXICITY [None]
  - VISION BLURRED [None]
